FAERS Safety Report 11318190 (Version 2)
Quarter: 2015Q3

REPORT INFORMATION
  Report Type: Report from Study
  Country: AU (occurrence: AU)
  Receive Date: 20150728
  Receipt Date: 20150805
  Transmission Date: 20151125
  Serious: Yes (Hospitalization)
  Sender: FDA-Public Use
  Company Number: PHHO2015AU009958

PATIENT
  Age: 68 Year
  Sex: Male
  Weight: 98.3 kg

DRUGS (10)
  1. NEXIUM [Suspect]
     Active Substance: ESOMEPRAZOLE MAGNESIUM
     Indication: GASTROOESOPHAGEAL REFLUX DISEASE
  2. BLINDED NO TREATMENT RECEIVED [Suspect]
     Active Substance: UNSPECIFIED INGREDIENT
     Indication: PSORIASIS
     Dosage: CODE NOT BROKEN
     Route: 058
     Dates: start: 20140602
  3. BLINDED USTEKINUMAB [Suspect]
     Active Substance: USTEKINUMAB
     Indication: PSORIASIS
     Dosage: CODE NOT BROKEN
     Route: 058
     Dates: start: 20140602
  4. ASPIRIN. [Concomitant]
     Active Substance: ASPIRIN
     Indication: PROPHYLAXIS
     Dosage: 100 MG, QD
     Route: 048
     Dates: start: 2009
  5. NEXIUM [Suspect]
     Active Substance: ESOMEPRAZOLE MAGNESIUM
     Indication: POST PROCEDURAL DISCOMFORT
     Dosage: 20 MG, QD
     Route: 048
     Dates: start: 20140601
  6. FELODIPINE. [Suspect]
     Active Substance: FELODIPINE
     Indication: HYPERTENSION
     Dosage: 5 MG, QD
     Route: 048
     Dates: start: 2011
  7. METOPROLOL [Suspect]
     Active Substance: METOPROLOL
     Indication: HYPERTENSION
     Dosage: 50 MG, QD
     Route: 048
     Dates: start: 2009
  8. SEREPAX [Concomitant]
     Active Substance: OXAZEPAM
     Indication: INSOMNIA
     Dosage: 7.5 MG, QD
     Route: 048
     Dates: start: 1995
  9. BLINDED AIN457 [Suspect]
     Active Substance: SECUKINUMAB
     Indication: PSORIASIS
     Dosage: CODE NOT BROKEN
     Route: 058
     Dates: start: 20140602
  10. ATACAND [Suspect]
     Active Substance: CANDESARTAN CILEXETIL
     Indication: HYPERTENSION
     Dosage: 8 MG, QD
     Route: 048
     Dates: start: 2009

REACTIONS (2)
  - Oral candidiasis [Not Recovered/Not Resolved]
  - Lichenification [Not Recovered/Not Resolved]

NARRATIVE: CASE EVENT DATE: 20140919
